FAERS Safety Report 8300155-2 (Version None)
Quarter: 2012Q2

REPORT INFORMATION
  Report Type: 
  Country: None (occurrence: None)
  Receive Date: 20120417
  Receipt Date: 20120405
  Transmission Date: 20120825
  Serious: Yes (Other)
  Sender: FDA-Public Use
  Company Number: 2012AP000879

PATIENT
  Age: 51 Year
  Sex: Female

DRUGS (3)
  1. OLANZAPINE [Suspect]
     Indication: SCHIZOPHRENIA, CATATONIC TYPE
     Dosage: 30 MG;QD;
  2. LEVOTHYROXINE SODIUM [Concomitant]
  3. LORAZEPAM [Concomitant]

REACTIONS (1)
  - HYPOTHERMIA [None]
